FAERS Safety Report 4359107-X (Version None)
Quarter: 2004Q2

REPORT INFORMATION
  Report Type: 
  Country: None (occurrence: None)
  Receive Date: 20040514
  Receipt Date: 20040504
  Transmission Date: 20050107
  Serious: Yes (Death, Hospitalization)
  Sender: FDA-Public Use
  Company Number: A-CH2004-06046

PATIENT
  Age: 70 Year
  Sex: Female

DRUGS (8)
  1. TRACLEER [Suspect]
     Indication: PULMONARY HYPERTENSION
     Dosage: 62.5 + 125 MG, BID, ORAL
     Route: 048
     Dates: start: 20040201, end: 20040301
  2. TRACLEER [Suspect]
     Indication: PULMONARY HYPERTENSION
     Dosage: 62.5 + 125 MG, BID, ORAL
     Route: 048
     Dates: start: 20040301, end: 20040411
  3. ALDACTONE [Concomitant]
  4. FOLIC ACID [Concomitant]
  5. LASIX [Concomitant]
  6. OXAZEPAM [Concomitant]
  7. CALCI D [Concomitant]
  8. OXYGEN (OXYGEN) [Concomitant]

REACTIONS (7)
  - CARDIAC ARREST [None]
  - CARDIAC FAILURE [None]
  - CHEST PAIN [None]
  - FLUID OVERLOAD [None]
  - HOT FLUSH [None]
  - MALAISE [None]
  - SHOCK [None]
